FAERS Safety Report 6835935-3 (Version None)
Quarter: 2010Q3

REPORT INFORMATION
  Report Type: 
  Country: None (occurrence: None)
  Receive Date: 20100713
  Receipt Date: 20100623
  Transmission Date: 20110219
  Serious: Yes (Hospitalization, Disabling)
  Sender: FDA-Public Use
  Company Number: A0807696A

PATIENT
  Age: 56 Year
  Sex: Male

DRUGS (6)
  1. AVANDIA [Suspect]
     Dosage: 8MG PER DAY
     Route: 048
     Dates: start: 20011201, end: 20070605
  2. METFORMIN HCL [Concomitant]
  3. GLUCOTROL [Concomitant]
  4. COREG [Concomitant]
  5. VYTORIN [Concomitant]
  6. CIALIS [Concomitant]

REACTIONS (4)
  - ATRIAL FLUTTER [None]
  - CORONARY ARTERY DISEASE [None]
  - ISCHAEMIC CARDIOMYOPATHY [None]
  - MYOCARDIAL INFARCTION [None]
